FAERS Safety Report 7115838-X (Version None)
Quarter: 2010Q4

REPORT INFORMATION
  Report Type: 
  Country: None (occurrence: None)
  Receive Date: 20101122
  Receipt Date: 20101108
  Transmission Date: 20110411
  Serious: Yes (Hospitalization)
  Sender: FDA-Public Use
  Company Number: US-ELI_LILLY_AND_COMPANY-US201011002496

PATIENT
  Sex: Female

DRUGS (6)
  1. EVISTA [Suspect]
     Indication: PROPHYLAXIS
     Dosage: UNK, QOD
  2. CYMBALTA [Concomitant]
     Indication: NEUROPATHY PERIPHERAL
     Dosage: 30 MG, DAILY (1/D)
  3. BENICAR [Concomitant]
     Dosage: 5 MG, DAILY (1/D)
  4. TRICOR [Concomitant]
     Dosage: 140 MG, DAILY (1/D)
  5. FISH OIL [Concomitant]
  6. CALCIUM [Concomitant]

REACTIONS (3)
  - DRUG DOSE OMISSION [None]
  - INAPPROPRIATE SCHEDULE OF DRUG ADMINISTRATION [None]
  - NERVOUS SYSTEM DISORDER [None]
